FAERS Safety Report 4566173-5 (Version None)
Quarter: 2005Q1

REPORT INFORMATION
  Report Type: 
  Country: None (occurrence: None)
  Receive Date: 20050201
  Receipt Date: 20050120
  Transmission Date: 20050727
  Serious: Yes (Other)
  Sender: FDA-Public Use
  Company Number: US-JNJFOC-20050105717

PATIENT
  Sex: Female

DRUGS (19)
  1. INFLIXIMAB [Suspect]
     Indication: RHEUMATOID ARTHRITIS
     Route: 042
  2. CELEBREX [Concomitant]
  3. DIOVAN [Concomitant]
  4. MULTI-VITAMIN [Concomitant]
  5. MULTI-VITAMIN [Concomitant]
  6. MULTI-VITAMIN [Concomitant]
  7. MULTI-VITAMIN [Concomitant]
  8. MULTI-VITAMIN [Concomitant]
  9. MULTI-VITAMIN [Concomitant]
  10. MULTI-VITAMIN [Concomitant]
  11. MULTI-VITAMIN [Concomitant]
  12. SKELAXIN [Concomitant]
  13. TYLENOL [Concomitant]
  14. VITAMIN C [Concomitant]
  15. VITAMIN E [Concomitant]
  16. METHOTREXATE [Concomitant]
  17. CLARINEX [Concomitant]
  18. CALCIUM +D [Concomitant]
  19. EVISTA [Concomitant]

REACTIONS (1)
  - SKIN CANCER [None]
